FAERS Safety Report 7593695-5 (Version None)
Quarter: 2011Q3

REPORT INFORMATION
  Report Type: 
  Country: None (occurrence: None)
  Receive Date: 20110706
  Receipt Date: 20110621
  Transmission Date: 20111222
  Serious: Yes (Other)
  Sender: FDA-Public Use
  Company Number: PHHY2011US26440

PATIENT
  Sex: Female

DRUGS (11)
  1. DIOVAN [Suspect]
     Indication: HYPERTENSION
     Dosage: 160 MG, UNK
  2. ATENOLOL [Suspect]
  3. CALCIUM CARBONATE [Concomitant]
  4. PHENERGAN HCL [Concomitant]
  5. TOPAMAX [Concomitant]
  6. ASPIRIN [Concomitant]
  7. ZANAFLEX [Concomitant]
  8. VICODIN [Concomitant]
  9. DIOVAN [Suspect]
     Dosage: 80 MG, UNK
  10. RECLAST [Suspect]
     Route: 042
     Dates: start: 20080911
  11. FLAXSEED OIL [Concomitant]

REACTIONS (4)
  - TOOTH DISORDER [None]
  - TOOTHACHE [None]
  - TOOTH LOSS [None]
  - BLOOD PRESSURE DECREASED [None]
